FAERS Safety Report 25052678 (Version 2)
Quarter: 2025Q1

REPORT INFORMATION
  Report Type: Spontaneous
  Country: US (occurrence: US)
  Receive Date: 20250307
  Receipt Date: 20250327
  Transmission Date: 20250409
  Serious: No
  Sender: BIOMARIN
  Company Number: US-BIOMARINAP-US-2025-164358

PATIENT

DRUGS (3)
  1. PALYNZIQ [Suspect]
     Active Substance: PEGVALIASE-PQPZ
     Indication: Phenylketonuria
     Dosage: 2.5 MILLIGRAM, QW
     Route: 058
     Dates: start: 202501
  2. PALYNZIQ [Suspect]
     Active Substance: PEGVALIASE-PQPZ
     Route: 058
  3. EPINEPHRINE [Concomitant]
     Active Substance: EPINEPHRINE
     Indication: Product used for unknown indication

REACTIONS (3)
  - Pyrexia [Unknown]
  - Injection site swelling [Unknown]
  - Injection site erythema [Unknown]
